FAERS Safety Report 10309652 (Version 2)
Quarter: 2014Q3

REPORT INFORMATION
  Report Type: Spontaneous
  Country: US (occurrence: US)
  Receive Date: 20140717
  Receipt Date: 20140721
  Transmission Date: 20150326
  Serious: Yes (Death)
  Sender: FDA-Public Use
  Company Number: US-MERCK-1407USA006416

PATIENT
  Age: 79 Year
  Sex: Male

DRUGS (1)
  1. SYLATRON [Suspect]
     Active Substance: PEGINTERFERON ALFA-2B
     Dosage: 296 MG KIT ONCE WEEKLY
     Route: 058
     Dates: start: 20130723

REACTIONS (2)
  - Overdose [Unknown]
  - Pulmonary fibrosis [Fatal]

NARRATIVE: CASE EVENT DATE: 20140401
